FAERS Safety Report 11496327 (Version 1)
Quarter: 2015Q3

REPORT INFORMATION
  Report Type: Spontaneous
  Country: US (occurrence: US)
  Receive Date: 20150911
  Receipt Date: 20150911
  Transmission Date: 20151125
  Serious: Yes (Other)
  Sender: FDA-Public Use
  Company Number: US-ASTELLAS-2015US025686

PATIENT
  Sex: Male

DRUGS (1)
  1. XTANDI [Suspect]
     Active Substance: ENZALUTAMIDE
     Indication: PROSTATE CANCER
     Dosage: 160 MG (4 CAPSULES 40 MG), ONCE DAILY
     Route: 065

REACTIONS (9)
  - Arthralgia [Unknown]
  - Deafness [Unknown]
  - Headache [Unknown]
  - Nasopharyngitis [Unknown]
  - Gait disturbance [Unknown]
  - Decreased appetite [Unknown]
  - Prostatic specific antigen increased [Unknown]
  - Cough [Unknown]
  - Pyrexia [Unknown]
